FAERS Safety Report 5145412-6 (Version None)
Quarter: 2006Q4

REPORT INFORMATION
  Report Type: 
  Country: None (occurrence: None)
  Receive Date: 20061107
  Receipt Date: 20060831
  Transmission Date: 20070319
  Serious: Yes (Hospitalization)
  Sender: FDA-Public Use
  Company Number: AU-BOEHRINGER INGELHEIM PHARMACEUTICALS, INC.-2006-BP-10181AU

PATIENT
  Sex: Female

DRUGS (6)
  1. MICARDIS HCT [Suspect]
     Indication: HYPERTENSION
     Dosage: 80/12.5 MG/MG
     Route: 048
     Dates: start: 20060110, end: 20060114
  2. IMURAN [Concomitant]
     Route: 048
  3. NEXIUM [Concomitant]
     Route: 048
  4. PLAQUENIL (HYDROXYCHLOROQUINE SULPHATE) [Concomitant]
     Route: 048
  5. PREDNISOLONE [Concomitant]
     Route: 048
  6. INDERAL [Concomitant]
     Route: 048

REACTIONS (6)
  - ASTHENIA [None]
  - COGNITIVE DISORDER [None]
  - DISTURBANCE IN ATTENTION [None]
  - SPEECH DISORDER [None]
  - SYSTEMIC LUPUS ERYTHEMATOSUS [None]
  - THROMBOCYTOPENIA [None]
